FAERS Safety Report 21762219 (Version 1)
Quarter: 2022Q4

REPORT INFORMATION
  Report Type: Spontaneous
  Country: None (occurrence: US)
  Receive Date: 20221221
  Receipt Date: 20221221
  Transmission Date: 20230113
  Serious: No
  Sender: FDA-Public Use
  Company Number: US-GREER Laboratories, Inc.-2136060

PATIENT
  Age: 70 Year
  Sex: Male
  Weight: 87.273 kg

DRUGS (27)
  1. JOHNSON GRASS [Suspect]
     Active Substance: SORGHUM HALEPENSE POLLEN
     Indication: Product used for unknown indication
     Route: 058
     Dates: start: 20221026
  2. JOHNSON GRASS POLLEN [Suspect]
     Active Substance: SORGHUM HALEPENSE POLLEN
     Route: 058
     Dates: start: 20221026
  3. ANTHOXANTHUM ODORATUM POLLEN\DACTYLIS GLOMERATA POLLEN\PHLEUM PRATENSE [Suspect]
     Active Substance: ANTHOXANTHUM ODORATUM POLLEN\DACTYLIS GLOMERATA POLLEN\PHLEUM PRATENSE POLLEN
     Route: 058
     Dates: start: 20221026
  4. GOLDENROD POLLEN [Suspect]
     Active Substance: SOLIDAGO CANADENSIS POLLEN
     Route: 058
     Dates: start: 20221026
  5. SHORT AND GIANT RAGWEED POLLEN MIX [Suspect]
     Active Substance: AMBROSIA ARTEMISIIFOLIA POLLEN\AMBROSIA TRIFIDA POLLEN
     Route: 058
     Dates: start: 20221026
  6. AMARANTHUS HYBRIDUS POLLEN\AMARANTHUS PALMERI POLLEN\AMARANTHUS RETROF [Suspect]
     Active Substance: AMARANTHUS HYBRIDUS POLLEN\AMARANTHUS PALMERI POLLEN\AMARANTHUS RETROFLEXUS POLLEN
     Route: 058
     Dates: start: 20221026
  7. 2 MAPLE POLLEN MIX [Suspect]
     Active Substance: ACER RUBRUM POLLEN\ACER SACCHARUM POLLEN
     Route: 058
     Dates: start: 20221026
  8. EASTERN OAK POLLEN MIX [Suspect]
     Active Substance: QUERCUS ALBA POLLEN\QUERCUS RUBRA POLLEN\QUERCUS VELUTINA POLLEN
     Route: 058
     Dates: start: 20221026
  9. RED CEDAR POLLEN [Suspect]
     Active Substance: JUNIPERUS VIRGINIANA POLLEN
     Route: 058
     Dates: start: 20221026
  10. BIRCH POLLEN MIX [Suspect]
     Active Substance: BETULA LENTA POLLEN\BETULA NIGRA POLLEN\BETULA POPULIFOLIA POLLEN
     Route: 058
     Dates: start: 20221026
  11. BLACK LOCUST BLOSSOM [Suspect]
     Active Substance: ROBINIA PSEUDOACACIA POLLEN
     Route: 058
     Dates: start: 20221026
  12. ALTERNARIA/HORMODENDRUM MIX [Suspect]
     Active Substance: ALTERNARIA ALTERNATA\ASPERGILLUS FUMIGATUS
     Route: 058
     Dates: start: 20221026
  13. ASPERGILLUS MIX [Suspect]
     Active Substance: ASPERGILLUS FLAVUS\ASPERGILLUS FUMIGATUS\ASPERGILLUS NIDULANS\ASPERGILLUS NIGER VAR. NIGER\EUROTIUM
     Route: 058
     Dates: start: 20221026
  14. CLADOSPORIUM HERBARUM [Suspect]
     Active Substance: CLADOSPORIUM HERBARUM
     Route: 058
     Dates: start: 20221026
  15. PENICILLIUM MIX [Suspect]
     Active Substance: PENICILLIUM CAMEMBERTI\PENICILLIUM CHRYSOGENUM VAR. CHRYSOGENUM\PENICILLIUM DIGITATUM\PENICILLIUM RO
     Route: 058
     Dates: start: 20221026
  16. STANDARDIZED MITE, DERMATOPHAGOIDES PTERONYSSINUS [Suspect]
     Active Substance: DERMATOPHAGOIDES PTERONYSSINUS
     Route: 058
     Dates: start: 20221026
  17. 2 COCKROACH MIX [Suspect]
     Active Substance: BLATELLA GERMANICA\PERIPLANETA AMERICANA
     Route: 058
     Dates: start: 20221026
  18. DOG EPITHELIA [Suspect]
     Active Substance: CANIS LUPUS FAMILIARIS SKIN
     Route: 058
     Dates: start: 20221026
  19. STANDARDIZED CAT HAIR [Suspect]
     Active Substance: FELIS CATUS HAIR
     Route: 058
     Dates: start: 20221026
  20. ADVAIR DISKUS [Concomitant]
     Active Substance: FLUTICASONE PROPIONATE\SALMETEROL XINAFOATE
  21. ALBUTEROL SULFATE [Concomitant]
     Active Substance: ALBUTEROL SULFATE
  22. OMEPRAZOLE [Concomitant]
     Active Substance: OMEPRAZOLE
  23. DONEPEZIL [Concomitant]
     Active Substance: DONEPEZIL
  24. LISINOPRIL [Concomitant]
     Active Substance: LISINOPRIL
  25. MONTELUKAST [Concomitant]
     Active Substance: MONTELUKAST SODIUM
  26. SERTRALINE [Concomitant]
     Active Substance: SERTRALINE HYDROCHLORIDE
  27. XYZAL [Concomitant]
     Active Substance: LEVOCETIRIZINE DIHYDROCHLORIDE

REACTIONS (4)
  - Dizziness [Recovered/Resolved]
  - Disorientation [Recovered/Resolved]
  - Asthenia [Recovered/Resolved]
  - Presyncope [Recovered/Resolved]

NARRATIVE: CASE EVENT DATE: 20221110
